FAERS Safety Report 4571831-2 (Version None)
Quarter: 2005Q1

REPORT INFORMATION
  Report Type: 
  Country: None (occurrence: None)
  Receive Date: 20050202
  Receipt Date: 20050121
  Transmission Date: 20050727
  Serious: No
  Sender: FDA-Public Use
  Company Number: 2005UW01150

PATIENT
  Age: 30 Year
  Sex: Female
  Weight: 71.6683 kg

DRUGS (3)
  1. SEROQUEL [Suspect]
     Indication: GENERALISED ANXIETY DISORDER
     Dosage: 25 MG ONCE PO
     Route: 048
     Dates: start: 20050116, end: 20050116
  2. SEROQUEL [Suspect]
     Indication: SLEEP DISORDER
     Dosage: 25 MG ONCE PO
     Route: 048
     Dates: start: 20050116, end: 20050116
  3. ATIVAN [Suspect]

REACTIONS (2)
  - BLINDNESS TRANSIENT [None]
  - DRUG WITHDRAWAL SYNDROME [None]
